FAERS Safety Report 15556360 (Version 1)
Quarter: 2018Q4

REPORT INFORMATION
  Report Type: Spontaneous
  Country: US (occurrence: US)
  Receive Date: 20181026
  Receipt Date: 20181026
  Transmission Date: 20190205
  Serious: Yes (Other)
  Sender: FDA-Public Use
  Company Number: US-SAKK-2018SA294714AA

PATIENT
  Age: 25 Year
  Sex: Female

DRUGS (1)
  1. ENOXAPARIN SODIUM - WINTHROP [Suspect]
     Active Substance: ENOXAPARIN SODIUM
     Indication: CARDIAC FAILURE
     Dosage: 60 MG, BID
     Route: 065

REACTIONS (3)
  - Left ventricle outflow tract obstruction [Unknown]
  - Thrombosis [Unknown]
  - Osteoporosis [Unknown]
